FAERS Safety Report 7684044-2 (Version None)
Quarter: 2011Q3

REPORT INFORMATION
  Report Type: 
  Country: None (occurrence: None)
  Receive Date: 20110815
  Receipt Date: 20110813
  Transmission Date: 20111222
  Serious: Yes (Other)
  Sender: FDA-Public Use
  Company Number: US-PFIZER INC-2011159063

PATIENT
  Sex: Male
  Weight: 74.83 kg

DRUGS (9)
  1. PREDNISONE [Suspect]
     Indication: NEUROPATHY PERIPHERAL
     Dosage: UNK
     Route: 048
     Dates: start: 20110711, end: 20110716
  2. VALIUM [Concomitant]
     Indication: SLEEP DISORDER
     Dosage: UNK, AS NEEDED
  3. PREDNISONE [Suspect]
     Indication: NEURALGIA
  4. PRAVASTATIN [Concomitant]
     Dosage: UNK
  5. DICLOFENAC [Concomitant]
     Dosage: UNK
  6. ARTHROTEC [Concomitant]
     Dosage: UNK
  7. LYRICA [Suspect]
     Indication: NEURALGIA
     Dosage: 75 MG, 2X/DAY
     Route: 048
     Dates: start: 20110711, end: 20110713
  8. ZYRTEC [Concomitant]
     Dosage: UNK
  9. LYRICA [Suspect]
     Indication: NEUROPATHY PERIPHERAL
     Dosage: 75 MG, 2X/DAY
     Route: 048
     Dates: start: 20110725

REACTIONS (4)
  - SWELLING [None]
  - RASH [None]
  - HERPES ZOSTER [None]
  - BLISTER [None]
